FAERS Safety Report 6853432-6 (Version None)
Quarter: 2010Q3

REPORT INFORMATION
  Report Type: 
  Country: None (occurrence: None)
  Receive Date: 20100717
  Receipt Date: 20071207
  Transmission Date: 20110219
  Serious: No
  Sender: FDA-Public Use
  Company Number: US-PFIZER INC-2007104531

PATIENT
  Sex: Female
  Weight: 104.3 kg

DRUGS (14)
  1. CHANTIX [Suspect]
     Indication: SMOKING CESSATION THERAPY
     Dates: start: 20071101
  2. ATENOLOL [Concomitant]
  3. LIPITOR [Concomitant]
  4. NEXIUM [Concomitant]
  5. LISINOPRIL [Concomitant]
  6. FUROSEMIDE [Concomitant]
  7. DILTIAZEM [Concomitant]
  8. HYDROCHLOROTHIAZIDE [Concomitant]
  9. QUINAPRIL [Concomitant]
  10. METOCLOPRAMIDE [Concomitant]
  11. PROMETHAZINE [Concomitant]
  12. PRILOSEC [Concomitant]
  13. REGLAN [Concomitant]
  14. MOBIC [Concomitant]

REACTIONS (2)
  - DIARRHOEA [None]
  - FLATULENCE [None]
